FAERS Safety Report 8232802-8 (Version None)
Quarter: 2012Q1

REPORT INFORMATION
  Report Type: 
  Country: None (occurrence: None)
  Receive Date: 20120323
  Receipt Date: 20120316
  Transmission Date: 20120608
  Serious: Yes (Other)
  Sender: FDA-Public Use
  Company Number: US-ASTRAZENECA-2009SE25020

PATIENT
  Age: 55 Year
  Sex: Female

DRUGS (1)
  1. NEXIUM [Suspect]
     Route: 048

REACTIONS (7)
  - THROAT IRRITATION [None]
  - DYSPHAGIA [None]
  - OESOPHAGEAL RUPTURE [None]
  - DRUG DOSE OMISSION [None]
  - OESOPHAGEAL DISORDER [None]
  - DRUG INEFFECTIVE [None]
  - PAIN [None]
